FAERS Safety Report 21323096 (Version 1)
Quarter: 2022Q3

REPORT INFORMATION
  Report Type: Spontaneous
  Country: US (occurrence: US)
  Receive Date: 20220912
  Receipt Date: 20220912
  Transmission Date: 20221027
  Serious: Yes (Other)
  Sender: FDA-Public Use
  Company Number: US-PFIZER INC-202201140478

PATIENT
  Age: 55 Year
  Weight: 48.53 kg

DRUGS (2)
  1. PAXLOVID [Suspect]
     Active Substance: NIRMATRELVIR\RITONAVIR
     Indication: COVID-19 treatment
     Dosage: 3 PILLS IN MORNING AND 3 PILLS IN THE EVENING
     Dates: start: 20220906, end: 20220906
  2. ACYCLOVIR [Suspect]
     Active Substance: ACYCLOVIR
     Indication: Intracranial infection
     Dosage: UNK UNK, 2X/DAY

REACTIONS (7)
  - Oropharyngeal blistering [Unknown]
  - Off label use [Unknown]
  - Pyrexia [Unknown]
  - Dizziness [Unknown]
  - Dysstasia [Unknown]
  - Impaired self-care [Unknown]
  - Blister [Unknown]

NARRATIVE: CASE EVENT DATE: 20220906
